FAERS Safety Report 9076134 (Version 1)
Quarter: 2013Q1

REPORT INFORMATION
  Report Type: Spontaneous
  Country: JP (occurrence: JP)
  Receive Date: 20130201
  Receipt Date: 20130201
  Transmission Date: 20140127
  Serious: Yes (Other)
  Sender: FDA-Public Use
  Company Number: JP-ALEXION-A201300087

PATIENT
  Age: 62 Year
  Sex: Male

DRUGS (8)
  1. SOLIRIS 300MG [Suspect]
     Indication: PAROXYSMAL NOCTURNAL HAEMOGLOBINURIA
     Dosage: 600 MG, QW
     Route: 042
     Dates: start: 20121205, end: 20121228
  2. ERYTHROCIN [Concomitant]
     Dosage: 400 MG, QD
     Dates: start: 20121205
  3. OLMETEC [Concomitant]
     Dosage: 20 MG, QD
     Dates: start: 20121205
  4. TAKEPRON [Concomitant]
     Dosage: 15 MG, QD
     Dates: start: 20121205
  5. SALAZOPYRIN [Concomitant]
     Dosage: 500 MG, QD
     Dates: start: 20121205
  6. BAKTAR [Concomitant]
     Dosage: 1 MG, QD
     Dates: start: 20121205, end: 20130101
  7. EXJADE [Concomitant]
     Dosage: 1000 MG, QD
     Dates: start: 201211
  8. FEBRICET [Concomitant]
     Dosage: 40 MG, QD
     Dates: start: 201211

REACTIONS (2)
  - Mania [Recovering/Resolving]
  - Photophobia [Unknown]
